FAERS Safety Report 5621696-2 (Version None)
Quarter: 2008Q1

REPORT INFORMATION
  Report Type: 
  Country: None (occurrence: None)
  Receive Date: 20080201
  Receipt Date: 20071211
  Transmission Date: 20080703
  Serious: Yes (Life-Threatening, Hospitalization)
  Sender: FDA-Public Use
  Company Number: WAES 0710USA00636

PATIENT
  Age: 63 Year
  Sex: Female
  Weight: 71.2147 kg

DRUGS (5)
  1. ZOLINZA [Suspect]
     Indication: BREAST CANCER METASTATIC
     Dosage: 400 MG/DAILY/PO;300 MG/DAILY/PO
     Route: 048
     Dates: start: 20061214, end: 20070522
  2. ZOLINZA [Suspect]
     Indication: BREAST CANCER METASTATIC
     Dosage: 400 MG/DAILY/PO;300 MG/DAILY/PO
     Route: 048
     Dates: start: 20070531, end: 20070929
  3. TAMOXIFEN CITRATE [Suspect]
     Indication: BREAST CANCER
     Dosage: 20 MG/DAILY/PO
     Route: 048
     Dates: start: 20061214, end: 20071001
  4. ACIPHEX [THERAPY UNSPECIFIED] [Concomitant]
  5. OXYCODONE HCL [Concomitant]

REACTIONS (22)
  - ABDOMINAL PAIN LOWER [None]
  - ASTHENIA [None]
  - BACK PAIN [None]
  - BLOOD BILIRUBIN INCREASED [None]
  - BLOOD POTASSIUM INCREASED [None]
  - BLOOD PRESSURE DIASTOLIC DECREASED [None]
  - DEEP VEIN THROMBOSIS [None]
  - DIZZINESS [None]
  - DYSPNOEA [None]
  - HAEMATOMA [None]
  - HAEMOGLOBIN DECREASED [None]
  - HAEMOLYSIS [None]
  - HEPATIC LESION [None]
  - HYPOTENSION [None]
  - HYPOVOLAEMIC SHOCK [None]
  - INTRA-ABDOMINAL HAEMORRHAGE [None]
  - LIVER FUNCTION TEST ABNORMAL [None]
  - LYMPHADENOPATHY [None]
  - MYOCARDIAL INFARCTION [None]
  - PULMONARY EMBOLISM [None]
  - SYNCOPE [None]
  - SYNOVIAL CYST [None]
